FAERS Safety Report 9905594 (Version 1)
Quarter: 2013Q2

REPORT INFORMATION
  Report Type: Spontaneous
  Country: US (occurrence: None)
  Receive Date: 20130305
  Receipt Date: 20130305
  Transmission Date: 20140414
  Serious: Yes (Other)
  Sender: FDA-Public Use
  Company Number: 163-21880-12041682

PATIENT
  Age: 62 Year
  Sex: Male

DRUGS (9)
  1. REVLIMID (LENALIDOMIDE) (10 MILLIGRAM, CAPSULES) [Suspect]
     Indication: PLASMA CELL MYELOMA
     Dosage: 10 MG, 21 IN 21 D, PO
     Route: 048
     Dates: start: 20100407
  2. CITRACAL WITH D (CITRACAL + D) (UNKNOWN) [Concomitant]
  3. WARFARIN (WARFARIN) (UNKNOWN) [Concomitant]
  4. CIALIS (TADALAFIL) (UNKNOWN) [Concomitant]
  5. ZOMETA (ZOLEDRONIC ACID) (UNKNOWN) [Concomitant]
  6. DEXAMETHASONE (DEXAMETHASONE) (UNKNOWN) [Concomitant]
  7. ECOTRIN (ACETYLSALICYLIC ACID) (UNKNOWN) [Concomitant]
  8. PANTOPRAZOLE SODIUM (PANTOPRAZOLE SODIUM) (UNKNOWN) [Concomitant]
  9. LISINOPRIL (LISINOPRIL) (UNKNOWN) [Concomitant]

REACTIONS (5)
  - Full blood count decreased [None]
  - Neutropenia [None]
  - Anaemia [None]
  - Thrombocytopenia [None]
  - Drug ineffective [None]
